FAERS Safety Report 7917065-2 (Version None)
Quarter: 2011Q4

REPORT INFORMATION
  Report Type: 
  Country: None (occurrence: None)
  Receive Date: 20111116
  Receipt Date: 20111114
  Transmission Date: 20120403
  Serious: Yes (Other)
  Sender: FDA-Public Use
  Company Number: US-PFIZER INC-2011278801

PATIENT
  Sex: Male
  Weight: 66.213 kg

DRUGS (3)
  1. PREDNISONE TAB [Suspect]
     Indication: STIFF-MAN SYNDROME
     Dosage: UNK
     Dates: end: 20111001
  2. GABAPENTIN [Suspect]
     Indication: STIFF-MAN SYNDROME
     Dosage: UNK
  3. ACETAMINOPHEN [Concomitant]
     Indication: PAIN
     Dosage: UNK, DAILY

REACTIONS (1)
  - IMMUNOSUPPRESSION [None]
